FAERS Safety Report 25059183 (Version 1)
Quarter: 2025Q1

REPORT INFORMATION
  Report Type: Spontaneous
  Country: US (occurrence: None)
  Receive Date: 20250307
  Receipt Date: 20250307
  Transmission Date: 20250408
  Serious: Yes (Disabling)
  Sender: FDA-CTU
  Company Number: None

PATIENT
  Age: 44 Year
  Sex: Female
  Weight: 65.25 kg

DRUGS (1)
  1. LEVAQUIN [Suspect]
     Active Substance: LEVOFLOXACIN

REACTIONS (6)
  - Disability [None]
  - Gait disturbance [None]
  - Myalgia [None]
  - Arthralgia [None]
  - Neuropathy peripheral [None]
  - Toxicity to various agents [None]

NARRATIVE: CASE EVENT DATE: 20240515
